FAERS Safety Report 19905014 (Version 1)
Quarter: 2021Q3

REPORT INFORMATION
  Report Type: Spontaneous
  Country: US (occurrence: US)
  Receive Date: 20210930
  Receipt Date: 20210930
  Transmission Date: 20211014
  Serious: Yes (Other)
  Sender: FDA-Public Use
  Company Number: None

PATIENT
  Age: 76 Year
  Sex: Female

DRUGS (1)
  1. HUMIRA [Suspect]
     Active Substance: ADALIMUMAB
     Indication: RHEUMATOID ARTHRITIS
     Dosage: OTHER FREQUENCY:QOWK;?
     Route: 058
     Dates: start: 20180328

REACTIONS (2)
  - Biopsy breast abnormal [None]
  - Breast conserving surgery [None]

NARRATIVE: CASE EVENT DATE: 20210503
